FAERS Safety Report 19750200 (Version 1)
Quarter: 2021Q3

REPORT INFORMATION
  Report Type: Spontaneous
  Country: UG (occurrence: UG)
  Receive Date: 20210826
  Receipt Date: 20210826
  Transmission Date: 20211014
  Serious: Yes (Life-Threatening)
  Sender: FDA-Public Use
  Company Number: None

PATIENT
  Age: 32 Year
  Sex: Male
  Weight: 73 kg

DRUGS (2)
  1. TRAMADOL. [Concomitant]
     Active Substance: TRAMADOL
  2. GRISEBEN [Suspect]
     Active Substance: GRISEOFULVIN
     Indication: FUNGAL INFECTION
     Dosage: ?          QUANTITY:30 TABLET(S);?
     Route: 048
     Dates: start: 20210820, end: 20210826

REACTIONS (2)
  - Yellow skin [None]
  - Blood urine present [None]

NARRATIVE: CASE EVENT DATE: 20210820
